FAERS Safety Report 12422957 (Version 1)
Quarter: 2016Q2

REPORT INFORMATION
  Report Type: Spontaneous
  Country: US (occurrence: None)
  Receive Date: 20160531
  Receipt Date: 20160531
  Transmission Date: 20160815
  Serious: Yes (Other)
  Sender: FDA-Public Use
  Company Number: None

PATIENT
  Age: 35 Year
  Sex: Female
  Weight: 39.46 kg

DRUGS (16)
  1. MULTI [Concomitant]
  2. OMEGA 3 [Concomitant]
     Active Substance: OMEGA-3 FATTY ACIDS
  3. DIGESTIVE ENZYMES [Concomitant]
     Active Substance: UNSPECIFIED INGREDIENT
  4. BIOTIN [Concomitant]
     Active Substance: BIOTIN
  5. VITAMIN B COMPLEX [Concomitant]
     Active Substance: CYANOCOBALAMIN\DEXPANTHENOL\NIACINAMIDE\PYRIDOXINE HYDROCHLORIDE\RIBOFLAVIN 5^-PHOSPHATE SODIUM\THIAMINE HYDROCHLORIDE\VITAMIN B COMPLEX
  6. CALCIUM [Concomitant]
     Active Substance: CALCIUM
  7. TOTAL GREENS CLEANSE [Concomitant]
  8. BRAGGS VINEGAR [Concomitant]
  9. VITAMIN C [Concomitant]
     Active Substance: ASCORBIC ACID
  10. OPC-3 [Concomitant]
  11. PROBIOTICS [Concomitant]
     Active Substance: PROBIOTICS NOS
  12. PRAZOSIN, 1 MG MYLAN [Suspect]
     Active Substance: PRAZOSIN
     Indication: POST-TRAUMATIC STRESS DISORDER
     Route: 048
     Dates: start: 20160527, end: 20160527
  13. DOTERRA ESSENTIAL OILS [Concomitant]
  14. PRAZOSIN, 1 MG MYLAN [Suspect]
     Active Substance: PRAZOSIN
     Indication: NIGHTMARE
     Route: 048
     Dates: start: 20160527, end: 20160527
  15. ALOE VERA JUICE [Concomitant]
  16. ORGANIC TURMERIC/GINGER [Concomitant]

REACTIONS (5)
  - Muscle spasms [None]
  - Abdominal pain [None]
  - Burning sensation [None]
  - Screaming [None]
  - Nausea [None]

NARRATIVE: CASE EVENT DATE: 20160528
